FAERS Safety Report 24222906 (Version 1)
Quarter: 2024Q3

REPORT INFORMATION
  Report Type: Spontaneous
  Country: FR (occurrence: FR)
  Receive Date: 20240819
  Receipt Date: 20240819
  Transmission Date: 20241017
  Serious: Yes (Life-Threatening, Hospitalization)
  Sender: Waylis
  Company Number: None

PATIENT
  Age: 27 Year
  Sex: Female

DRUGS (5)
  1. DIAZEPAM [Suspect]
     Active Substance: DIAZEPAM
     Indication: Intentional overdose
     Dosage: 10 MG X 37 CP; IN TOTAL
     Route: 050
     Dates: start: 20240716, end: 20240716
  2. LOXAPINE [Suspect]
     Active Substance: LOXAPINE
     Indication: Intentional overdose
     Dosage: 25 MG X 10 CP; IN TOTAL
     Route: 050
     Dates: start: 20240716, end: 20240716
  3. ALPRAZOLAM [Suspect]
     Active Substance: ALPRAZOLAM
     Indication: Intentional overdose
     Dosage: 0.5 MG X 26 CP; IN TOTAL
     Route: 050
     Dates: start: 20240716, end: 20240716
  4. ZOLPIDEM [Suspect]
     Active Substance: ZOLPIDEM TARTRATE
     Indication: Intentional overdose
     Dosage: 10 MG X 14 CP; IN TOTAL
     Route: 050
     Dates: start: 20240716, end: 20240716
  5. METHADONE [Suspect]
     Active Substance: METHADONE HYDROCHLORIDE
     Indication: Intentional overdose
     Dosage: ; IN TOTAL
     Route: 050
     Dates: start: 20240716, end: 20240716

REACTIONS (3)
  - Poisoning deliberate [Recovered/Resolved]
  - Miosis [Recovering/Resolving]
  - Depressed level of consciousness [Recovering/Resolving]

NARRATIVE: CASE EVENT DATE: 20240716
